FAERS Safety Report 14287263 (Version 6)
Quarter: 2018Q2

REPORT INFORMATION
  Report Type: Report from Study
  Country: US (occurrence: US)
  Receive Date: 20171214
  Receipt Date: 20180424
  Transmission Date: 20180711
  Serious: Yes (Other)
  Sender: FDA-Public Use
  Company Number: US-PFIZER INC-2017531025

PATIENT
  Age: 73 Year
  Sex: Female

DRUGS (1)
  1. IBRANCE [Suspect]
     Active Substance: PALBOCICLIB
     Indication: BREAST CANCER
     Dosage: 125 MG, CYCLIC (DAILY, 21 DAYS ON/ 7 DAYS OFF)
     Route: 048
     Dates: start: 20171114

REACTIONS (12)
  - Peripheral swelling [Recovering/Resolving]
  - Tumour marker increased [Unknown]
  - Rash [Unknown]
  - Ascites [Unknown]
  - White blood cell count decreased [Recovering/Resolving]
  - Tongue haemorrhage [Unknown]
  - Flatulence [Unknown]
  - Nausea [Unknown]
  - Diarrhoea [Unknown]
  - Fatigue [Recovering/Resolving]
  - Thrombosis [Unknown]
  - Red blood cell count decreased [Recovering/Resolving]

NARRATIVE: CASE EVENT DATE: 2017
